FAERS Safety Report 26216820 (Version 1)
Quarter: 2025Q4

REPORT INFORMATION
  Report Type: Spontaneous
  Country: US (occurrence: US)
  Receive Date: 20251231
  Receipt Date: 20251231
  Transmission Date: 20260118
  Serious: Yes (Life-Threatening, Hospitalization, Other)
  Sender: DR REDDYS
  Company Number: US-DRL-USA-USA/2025/12/019905

PATIENT
  Age: 30 Year
  Sex: Male

DRUGS (2)
  1. NALOXONE [Suspect]
     Active Substance: NALOXONE
     Indication: Overdose
     Dosage: FOUR DOSES OF NALOXONE
  2. NALOXONE [Suspect]
     Active Substance: NALOXONE
     Indication: Unresponsive to stimuli

REACTIONS (1)
  - Pulmonary oedema [Recovered/Resolved]
